FAERS Safety Report 8047440-X (Version None)
Quarter: 2012Q1

REPORT INFORMATION
  Report Type: 
  Country: None (occurrence: None)
  Receive Date: 20120116
  Receipt Date: 20120106
  Transmission Date: 20120608
  Serious: Yes (Other)
  Sender: FDA-Public Use
  Company Number: US-JNJFOC-20120101997

PATIENT
  Sex: Female
  Weight: 99.79 kg

DRUGS (2)
  1. REMICADE [Suspect]
     Indication: CROHN'S DISEASE
     Dosage: INFLIXIMAB THERAPY FOR 4-5 YEARS
     Route: 042
     Dates: end: 20110101
  2. IMURAN [Suspect]
     Indication: CROHN'S DISEASE
     Route: 048

REACTIONS (2)
  - DECREASED IMMUNE RESPONSIVENESS [None]
  - CERVICAL DYSPLASIA [None]
